FAERS Safety Report 7078161-8 (Version None)
Quarter: 2010Q4

REPORT INFORMATION
  Report Type: 
  Country: None (occurrence: None)
  Receive Date: 20101101
  Receipt Date: 20101101
  Transmission Date: 20110411
  Serious: Yes (Hospitalization, Other)
  Sender: FDA-Public Use
  Company Number: None

PATIENT
  Age: 6 Year
  Sex: Male
  Weight: 34.0198 kg

DRUGS (1)
  1. VYVANSE [Suspect]
     Indication: ATTENTION DEFICIT/HYPERACTIVITY DISORDER
     Dosage: 30MG 1 TIME ORAL
     Route: 048
     Dates: start: 20101015

REACTIONS (8)
  - AGITATION [None]
  - EYE DISORDER [None]
  - HALLUCINATIONS, MIXED [None]
  - HEART RATE INCREASED [None]
  - INSOMNIA [None]
  - JAW DISORDER [None]
  - NERVOUS SYSTEM DISORDER [None]
  - NERVOUSNESS [None]
